FAERS Safety Report 7113118-X (Version None)
Quarter: 2010Q4

REPORT INFORMATION
  Report Type: 
  Country: None (occurrence: None)
  Receive Date: 20101119
  Receipt Date: 20101111
  Transmission Date: 20110411
  Serious: Yes (Death, Life-Threatening, Hospitalization, Disabling)
  Sender: FDA-Public Use
  Company Number: JP-MILLENNIUM PHARMACEUTICALS, INC.-2009-04108

PATIENT

DRUGS (19)
  1. VELCADE [Suspect]
     Indication: MULTIPLE MYELOMA
     Dosage: 1.4 MG, UNK
     Route: 042
     Dates: start: 20090908, end: 20090908
  2. DECADRON [Concomitant]
     Indication: MULTIPLE MYELOMA
     Dosage: 40 ML, UNK
     Route: 042
     Dates: start: 20090908, end: 20090909
  3. NORVASC [Concomitant]
     Dosage: 5 MG, UNK
     Route: 048
     Dates: end: 20090828
  4. KETOPROFEN [Concomitant]
     Dosage: UNK
     Route: 062
     Dates: start: 20090828
  5. SELTOUCH [Concomitant]
     Route: 062
  6. BACTRIM [Concomitant]
     Dosage: 1 G, UNK
     Route: 048
     Dates: start: 20090912
  7. MYCOSYST [Concomitant]
     Dosage: 100 MG, UNK
     Route: 048
     Dates: start: 20090912, end: 20090918
  8. HUMULIN R [Concomitant]
     Dosage: 24 IU, UNK
     Route: 042
  9. LASIX [Concomitant]
     Dosage: 20 MG, UNK
     Route: 048
     Dates: start: 20090910, end: 20090916
  10. LASIX [Concomitant]
     Dosage: 20 MG, UNK
     Route: 042
     Dates: start: 20090910, end: 20090914
  11. MAXIPIME [Concomitant]
     Dosage: 2000 MG, UNK
     Route: 042
     Dates: start: 20090913, end: 20090921
  12. SOL-MELCORT [Concomitant]
     Dosage: 500 MG, UNK
     Route: 042
     Dates: start: 20090914, end: 20090916
  13. PASIL [Concomitant]
     Dosage: UNK
     Route: 042
     Dates: start: 20090914, end: 20090921
  14. DENOSINE                           /00238401/ [Concomitant]
     Dosage: 100 MG, UNK
     Route: 042
     Dates: start: 20090914, end: 20090916
  15. DOPAMINE HYDROCHLORIDE [Concomitant]
     Dosage: 600 MG, UNK
     Route: 042
     Dates: start: 20090914, end: 20090916
  16. HEPARIN [Concomitant]
     Dosage: 10000 IU, UNK
     Route: 042
     Dates: start: 20090905, end: 20090917
  17. ACYCLOVIR [Concomitant]
     Dosage: 200 MG, UNK
     Route: 048
     Dates: start: 20090911, end: 20090918
  18. LEVOFLOXACIN [Concomitant]
     Dosage: 10 MG, UNK
     Route: 048
     Dates: start: 20090910, end: 20090914
  19. PREDNISOLONE [Concomitant]
     Dosage: 10 MG, UNK
     Route: 048
     Dates: start: 20090908, end: 20090913

REACTIONS (4)
  - DUODENAL ULCER [None]
  - HYPOAESTHESIA [None]
  - PNEUMONIA [None]
  - RENAL FAILURE [None]
